FAERS Safety Report 18805559 (Version 1)
Quarter: 2021Q1

REPORT INFORMATION
  Report Type: Report from Study
  Country: US (occurrence: US)
  Receive Date: 20210129
  Receipt Date: 20210129
  Transmission Date: 20210419
  Serious: Yes (Death, Other)
  Sender: FDA-Public Use
  Company Number: US-ACADIA PHARMACEUTICALS INC.-ACA-2021-PIM-000170

PATIENT
  Age: 81 Year
  Sex: Male

DRUGS (15)
  1. NUPLAZID [Suspect]
     Active Substance: PIMAVANSERIN TARTRATE
     Indication: PARKINSON^S DISEASE
     Dosage: 10 MILLIGRAM
     Route: 065
     Dates: start: 202007
  2. CARBIDOPA/LEVODOPA [Concomitant]
     Active Substance: CARBIDOPA\LEVODOPA
  3. DONEPEZIL. [Concomitant]
     Active Substance: DONEPEZIL
  4. HYOSCYAMINE. [Concomitant]
     Active Substance: HYOSCYAMINE
  5. COMBIGAN [Concomitant]
     Active Substance: BRIMONIDINE TARTRATE\TIMOLOL MALEATE
  6. AMIODARONE [Concomitant]
     Active Substance: AMIODARONE
  7. MIDODRINE [Concomitant]
     Active Substance: MIDODRINE
  8. NUPLAZID [Suspect]
     Active Substance: PIMAVANSERIN TARTRATE
     Indication: PARKINSON^S DISEASE
     Dosage: 34 MILLIGRAM, QD
     Route: 048
     Dates: start: 20201023
  9. BLEPHAMIDE [PREDNISOLONE ACETATE;SULFACETAMIDE SODIUM] [Concomitant]
  10. LORAZEPAM. [Concomitant]
     Active Substance: LORAZEPAM
  11. TRAVOPROST. [Concomitant]
     Active Substance: TRAVOPROST
  12. NILUTAMIDE. [Concomitant]
     Active Substance: NILUTAMIDE
  13. MORPHINE [Concomitant]
     Active Substance: MORPHINE
  14. TYLENOL [Concomitant]
     Active Substance: ACETAMINOPHEN
  15. WARFARIN [Concomitant]
     Active Substance: WARFARIN

REACTIONS (2)
  - Underdose [Recovered/Resolved]
  - Death [Fatal]

NARRATIVE: CASE EVENT DATE: 202007
